FAERS Safety Report 16547833 (Version 4)
Quarter: 2020Q4

REPORT INFORMATION
  Report Type: Spontaneous
  Country: US (occurrence: US)
  Receive Date: 20190709
  Receipt Date: 20201006
  Transmission Date: 20210113
  Serious: Yes (Death, Other)
  Sender: FDA-Public Use
  Company Number: US-SA-2019SA180775

PATIENT

DRUGS (14)
  1. CLONAZEPAM. [Concomitant]
     Active Substance: CLONAZEPAM
  2. LISINOPRIL. [Concomitant]
     Active Substance: LISINOPRIL
  3. CHANTIX [Concomitant]
     Active Substance: VARENICLINE TARTRATE
  4. AUBAGIO [Suspect]
     Active Substance: TERIFLUNOMIDE
     Indication: PRODUCT USED FOR UNKNOWN INDICATION
     Dosage: 1 DF, QD
     Route: 048
     Dates: start: 20170120
  5. DULOXETINE. [Concomitant]
     Active Substance: DULOXETINE
  6. LEVEMIR [Concomitant]
     Active Substance: INSULIN DETEMIR
  7. ROSUVASTATIN. [Concomitant]
     Active Substance: ROSUVASTATIN
  8. TIZANIDINE. [Concomitant]
     Active Substance: TIZANIDINE
  9. PANTOPRAZOLE [Concomitant]
     Active Substance: PANTOPRAZOLE
  10. LANTUS [Concomitant]
     Active Substance: INSULIN GLARGINE
  11. ZOLPIDEM [Concomitant]
     Active Substance: ZOLPIDEM TARTRATE
  12. AMLODIPINE [Concomitant]
     Active Substance: AMLODIPINE BESYLATE
  13. IBUPROFEN. [Concomitant]
     Active Substance: IBUPROFEN
  14. MAG OXIDE [Concomitant]
     Active Substance: MAGNESIUM OXIDE

REACTIONS (2)
  - Death [Fatal]
  - Product dose omission issue [Unknown]
